FAERS Safety Report 23972918 (Version 1)
Quarter: 2024Q2

REPORT INFORMATION
  Report Type: Spontaneous
  Country: US (occurrence: US)
  Receive Date: 20240613
  Receipt Date: 20240613
  Transmission Date: 20240716
  Serious: Yes (Hospitalization)
  Sender: FDA-Public Use
  Company Number: US-BAYER-2024A082962

PATIENT
  Age: 83 Year
  Sex: Male

DRUGS (1)
  1. STIVARGA [Suspect]
     Active Substance: REGORAFENIB\REGORAFENIB MONOHYDRATE
     Dosage: UNK
     Dates: start: 20240517, end: 20240530

REACTIONS (5)
  - Tremor [Recovering/Resolving]
  - Dementia [Recovering/Resolving]
  - Hallucination [Recovering/Resolving]
  - Personality change [Recovering/Resolving]
  - Fall [Recovering/Resolving]
